FAERS Safety Report 6122459-4 (Version None)
Quarter: 2009Q1

REPORT INFORMATION
  Report Type: 
  Country: None (occurrence: None)
  Receive Date: 20090318
  Receipt Date: 20081224
  Transmission Date: 20090719
  Serious: No
  Sender: FDA-Public Use
  Company Number: US-ASTRAZENECA-2008UW28710

PATIENT
  Age: 6260 Day
  Sex: Female

DRUGS (6)
  1. SYMBICORT [Suspect]
     Indication: ASTHMA EXERCISE INDUCED
     Dosage: UNKNOWN
     Route: 055
     Dates: start: 20081122
  2. XOPENEX [Suspect]
     Indication: ASTHMA EXERCISE INDUCED
     Dosage: 45 MCG, AS NEEDED
     Route: 055
     Dates: start: 20060101
  3. XOPENEX [Suspect]
     Dosage: 45 MCG, AS NEEDED
     Route: 055
     Dates: start: 20080101, end: 20080101
  4. XOPENEX [Suspect]
     Dosage: 4 MCG, AS NEEDED
     Route: 055
     Dates: start: 20081120, end: 20081122
  5. XOPENEX [Suspect]
     Dosage: 4 MCG, AS NEEDED
     Route: 055
     Dates: start: 20081204, end: 20081204
  6. ALBUTEROL [Concomitant]

REACTIONS (10)
  - ASTHMA [None]
  - DIZZINESS [None]
  - FATIGUE [None]
  - FEELING COLD [None]
  - FEELING JITTERY [None]
  - HEADACHE [None]
  - NASOPHARYNGITIS [None]
  - NERVOUSNESS [None]
  - OROPHARYNGEAL PAIN [None]
  - SINUSITIS [None]
